FAERS Safety Report 5622657-X (Version None)
Quarter: 2008Q1

REPORT INFORMATION
  Report Type: 
  Country: None (occurrence: None)
  Receive Date: 20080211
  Receipt Date: 20080211
  Transmission Date: 20080703
  Serious: Yes (Hospitalization, Other)
  Sender: FDA-Public Use
  Company Number: None

PATIENT
  Age: 35 Year
  Sex: Female
  Weight: 77.1115 kg

DRUGS (2)
  1. LEVAQUIN [Suspect]
     Indication: BRONCHITIS
     Dosage: 500G DAILY IV  750G DAILY P.O.
     Route: 042
     Dates: start: 20071104, end: 20071111
  2. LEVAQUIN [Suspect]
     Indication: PNEUMONIA
     Dosage: 500G DAILY IV  750G DAILY P.O.
     Route: 042
     Dates: start: 20071104, end: 20071111

REACTIONS (9)
  - ASTHENIA [None]
  - BLADDER DISORDER [None]
  - CONSTIPATION [None]
  - DEPRESSION [None]
  - HALLUCINATION [None]
  - INSOMNIA [None]
  - MUSCULOSKELETAL PAIN [None]
  - NEUROPATHY PERIPHERAL [None]
  - NIGHTMARE [None]
